FAERS Safety Report 9179833 (Version 1)
Quarter: 2013Q1

REPORT INFORMATION
  Report Type: Spontaneous
  Country: TR (occurrence: TR)
  Receive Date: 20130321
  Receipt Date: 20130321
  Transmission Date: 20140127
  Serious: Yes (Other)
  Sender: FDA-Public Use
  Company Number: TR-WATSON-2013-03949

PATIENT
  Sex: Female
  Weight: 3.75 kg

DRUGS (10)
  1. OCTREOTIDE [Suspect]
     Indication: HYPERINSULINISM
     Dosage: 7 ?G/KG, DAILY
     Route: 065
  2. OCTREOTIDE [Suspect]
     Dosage: 20 ?G/KG, DAILY
     Route: 065
  3. OCTREOTIDE [Suspect]
     Dosage: 40 ?G/KG, DAILY
     Route: 065
  4. OCTREOTIDE [Suspect]
     Dosage: 15 ?G/KG, DAILY
     Route: 065
  5. OCTREOTIDE [Suspect]
     Dosage: 5 ?G/KG, DAILY
     Route: 065
  6. CHLOROTHIAZIDE [Suspect]
     Indication: HYPERINSULINISM
     Dosage: 8 MG/KG, DAILY
     Route: 065
  7. DIAZOXIDE [Suspect]
     Indication: HYPERINSULINISM
     Dosage: 20 MG/KG, DAILY
     Route: 065
  8. DIAZOXIDE [Suspect]
     Dosage: 10 MG/KG, DAILY
     Route: 065
  9. DIAZOXIDE [Suspect]
     Dosage: 8 MG/KG, DAILY
     Route: 065
  10. PHENOBARBITAL [Concomitant]
     Indication: GRAND MAL CONVULSION
     Dosage: 5 MG/KG,DAILY
     Route: 065

REACTIONS (5)
  - Drug withdrawal convulsions [Recovered/Resolved]
  - Cholelithiasis [Unknown]
  - Cholestasis [Unknown]
  - Growth retardation [Unknown]
  - Drug ineffective [Not Recovered/Not Resolved]
